FAERS Safety Report 4847901-8 (Version None)
Quarter: 2005Q4

REPORT INFORMATION
  Report Type: 
  Country: None (occurrence: None)
  Receive Date: 20051206
  Receipt Date: 20051206
  Transmission Date: 20060501
  Serious: Yes (Hospitalization, Disabling)
  Sender: FDA-Public Use
  Company Number: None

PATIENT
  Age: 57 Year
  Sex: Female
  Weight: 72.5755 kg

DRUGS (6)
  1. LEVOFLOXACIN [Suspect]
     Indication: BRONCHITIS ACUTE
     Dosage: 500MG  DAILY PO    ONE DOSE
     Route: 048
     Dates: start: 20050822, end: 20050822
  2. LEVOTHYROXINE SODIUM [Concomitant]
  3. CONJUGATED ESTROGEN [Concomitant]
  4. PREMARIN [Concomitant]
  5. FUROSEMIDE [Concomitant]
  6. PAROXETINE HCL [Concomitant]

REACTIONS (5)
  - CHEST PAIN [None]
  - DYSPNOEA [None]
  - FEELING ABNORMAL [None]
  - URTICARIA [None]
  - WHEEZING [None]
